FAERS Safety Report 13712641 (Version 3)
Quarter: 2017Q3

REPORT INFORMATION
  Report Type: Spontaneous
  Country: JP (occurrence: JP)
  Receive Date: 20170703
  Receipt Date: 20170711
  Transmission Date: 20171127
  Serious: Yes (Other)
  Sender: FDA-Public Use
  Company Number: JP-BAYER-2017-122434

PATIENT
  Age: 70 Year

DRUGS (1)
  1. BAYASPIRIN 100 MG [Suspect]
     Active Substance: ASPIRIN
     Route: 048

REACTIONS (6)
  - Drug administration error [None]
  - Atrial fibrillation [None]
  - Cerebral artery embolism [None]
  - Haemorrhagic cerebral infarction [None]
  - Drug interaction [None]
  - Labelled drug-drug interaction medication error [None]
